FAERS Safety Report 10936338 (Version 1)
Quarter: 2015Q1

REPORT INFORMATION
  Report Type: Spontaneous
  Country: US (occurrence: None)
  Receive Date: 20150320
  Receipt Date: 20150320
  Transmission Date: 20150721
  Serious: Yes (Disabling)
  Sender: FDA-Public Use
  Company Number: None

PATIENT
  Age: 72 Year
  Sex: Female
  Weight: 68.04 kg

DRUGS (6)
  1. B12 COMPLEX [Concomitant]
  2. VIT. C [Concomitant]
  3. FOLIC ACID. [Concomitant]
     Active Substance: FOLIC ACID
  4. URSODIOL 300MG LANNETT [Suspect]
     Active Substance: URSODIOL
     Indication: BILIARY CIRRHOSIS PRIMARY
     Dosage: 2 PILLS DAILY TWICE DAILY TAIKEN BY MOUTH
     Route: 048
     Dates: start: 20150121, end: 20150318
  5. MAGNIEISIUM [Concomitant]
  6. ZINC [Concomitant]
     Active Substance: ZINC\ZINC CHLORIDE

REACTIONS (3)
  - Hepatic pain [None]
  - Neuralgia [None]
  - Abdominal pain upper [None]

NARRATIVE: CASE EVENT DATE: 20150121
